FAERS Safety Report 24608960 (Version 2)
Quarter: 2024Q4

REPORT INFORMATION
  Report Type: Spontaneous
  Country: JP (occurrence: JP)
  Receive Date: 20241112
  Receipt Date: 20241203
  Transmission Date: 20250115
  Serious: Yes (Hospitalization, Other)
  Sender: ANI
  Company Number: JP-ANIPHARMA-2024-JP-000298

PATIENT
  Age: 70 Year
  Sex: Male

DRUGS (2)
  1. CANDESARTAN CILEXETIL [Suspect]
     Active Substance: CANDESARTAN CILEXETIL
     Indication: Cardiac failure
     Dosage: 4 MILLIGRAM, BLOPRESS TABLETS 4 /  2 MILLIGRAM, BLOPRESS TABLETS 2
     Route: 048
     Dates: start: 20240329, end: 20241015
  2. TORSEMIDE [Concomitant]
     Active Substance: TORSEMIDE
     Dates: end: 2024

REACTIONS (15)
  - Fall [Unknown]
  - Dyspnoea [Recovered/Resolved]
  - Nausea [Unknown]
  - Oedema [Recovered/Resolved]
  - Malaise [Unknown]
  - Therapy cessation [Unknown]
  - Blood pressure decreased [Unknown]
  - Amyloidosis [Unknown]
  - Skin laceration [Recovered/Resolved]
  - Syncope [Recovered/Resolved]
  - Atrial fibrillation [Unknown]
  - Injury [Unknown]
  - Dehydration [Unknown]
  - Chromaturia [Unknown]
  - Feeling abnormal [Unknown]

NARRATIVE: CASE EVENT DATE: 20240101
